FAERS Safety Report 19425811 (Version 2)
Quarter: 2021Q3

REPORT INFORMATION
  Report Type: Spontaneous
  Country: ZA (occurrence: ZA)
  Receive Date: 20210617
  Receipt Date: 20210712
  Transmission Date: 20211014
  Serious: Yes (Other)
  Sender: FDA-Public Use
  Company Number: ZA-CELLTRION INC.-2021ZA007901

PATIENT

DRUGS (6)
  1. FOLIC ACID. [Concomitant]
     Active Substance: FOLIC ACID
     Indication: COLITIS ULCERATIVE
     Dosage: 5 MG P.O
     Route: 048
  2. PENTASA [Concomitant]
     Active Substance: MESALAMINE
     Indication: COLITIS ULCERATIVE
     Dosage: 1 G, SUPP NOCTE
  3. REMSIMA [Suspect]
     Active Substance: INFLIXIMAB
     Indication: COLITIS ULCERATIVE
     Dosage: 180 MG
     Route: 042
     Dates: start: 20201209
  4. METHOTREXATE. [Concomitant]
     Active Substance: METHOTREXATE
     Indication: COLITIS ULCERATIVE
     Dosage: 12.5 MG, WEEKLY
     Route: 048
  5. REMSIMA [Suspect]
     Active Substance: INFLIXIMAB
     Dosage: 155 MG AT 0 WEEKS; 2 WEEKS AND 6 WEEKS
     Route: 042
     Dates: start: 20201209
  6. PENTASA [Concomitant]
     Active Substance: MESALAMINE
     Dosage: 2 G BD P.O
     Route: 048

REACTIONS (3)
  - Underdose [Unknown]
  - Colitis ulcerative [Unknown]
  - Overdose [Unknown]

NARRATIVE: CASE EVENT DATE: 20210519
